FAERS Safety Report 9002053 (Version 1)
Quarter: 2013Q1

REPORT INFORMATION
  Report Type: Spontaneous
  Country: GB (occurrence: GB)
  Receive Date: 20130107
  Receipt Date: 20130107
  Transmission Date: 20140127
  Serious: Yes (Hospitalization, Other)
  Sender: FDA-Public Use
  Company Number: GB-ROCHE-1139695

PATIENT
  Age: 12 Year
  Sex: Male
  Weight: 32.9 kg

DRUGS (5)
  1. XOLAIR [Suspect]
     Indication: ASTHMA
     Route: 058
     Dates: start: 20120301
  2. XOLAIR [Suspect]
     Route: 058
     Dates: start: 20120830, end: 20120830
  3. SERETIDE [Concomitant]
     Dosage: 125
     Route: 065
  4. PREDNISOLONE [Concomitant]
  5. EPIPEN [Concomitant]

REACTIONS (4)
  - Injection site hypersensitivity [Recovered/Resolved]
  - Wheezing [Recovered/Resolved]
  - Sneezing [Unknown]
  - Nasopharyngitis [Unknown]
